FAERS Safety Report 8383292-6 (Version None)
Quarter: 2012Q1

REPORT INFORMATION
  Report Type: 
  Country: None (occurrence: None)
  Receive Date: 20120323
  Receipt Date: 20110804
  Transmission Date: 20120608
  Serious: Yes (Hospitalization)
  Sender: FDA-Public Use
  Company Number: 163-21880-11051123

PATIENT
  Age: 48 Year
  Sex: Female
  Weight: 90.9 kg

DRUGS (13)
  1. REVLIMID [Suspect]
     Indication: MULTIPLE MYELOMA
     Dosage: 15 MG, DAILY X 21/28 DAYS, PO 15 MG, DAILY X 21/28 DAYS, PO
     Route: 048
     Dates: start: 20110112, end: 20110201
  2. REVLIMID [Suspect]
     Indication: MULTIPLE MYELOMA
     Dosage: 15 MG, DAILY X 21/28 DAYS, PO 15 MG, DAILY X 21/28 DAYS, PO
     Route: 048
     Dates: start: 20090901
  3. OXYCODONE HCL [Concomitant]
  4. CARVEDILOL [Concomitant]
  5. HYDROMORPHONE HCL [Concomitant]
  6. MULTIVITAMIN [Concomitant]
  7. COMPAZINE [Concomitant]
  8. DCADRON (DEXAMETHASONE) [Concomitant]
  9. CALCIUM + VITAMIN D (OS-CAL) [Concomitant]
  10. CELEBREX [Concomitant]
  11. GABAPENTIN [Concomitant]
  12. VELCADE [Concomitant]
  13. ZOMETA [Concomitant]

REACTIONS (2)
  - MULTIPLE MYELOMA [None]
  - MUSCULAR WEAKNESS [None]
